FAERS Safety Report 7068594-8 (Version None)
Quarter: 2010Q4

REPORT INFORMATION
  Report Type: 
  Country: None (occurrence: None)
  Receive Date: 20101027
  Receipt Date: 20101027
  Transmission Date: 20110411
  Serious: Yes (Death, Life-Threatening, Hospitalization)
  Sender: FDA-Public Use
  Company Number: None

PATIENT
  Age: 50 Year
  Sex: Male
  Weight: 63.9572 kg

DRUGS (15)
  1. AZACITADINE [Suspect]
     Indication: MYELODYSPLASTIC SYNDROME
     Dosage: 135 QDAILY IV BOLUS
     Route: 040
     Dates: start: 20101009, end: 20101013
  2. AZITHROMYCIN [Concomitant]
  3. MS CONTIN [Concomitant]
  4. MORPHINE SULFATE [Concomitant]
  5. MORPHINE [Concomitant]
  6. VORICONAZOLE [Concomitant]
  7. CEFEPIME [Concomitant]
  8. VANCOMYCIN [Concomitant]
  9. AMIODARONE HCL [Concomitant]
  10. BACTRIM [Concomitant]
  11. METHYLPREDNISOLONE [Concomitant]
  12. PAXIL [Concomitant]
  13. PROTONIX [Concomitant]
  14. LASIX [Concomitant]
  15. MIRTAZAPINE [Concomitant]

REACTIONS (12)
  - ABDOMINAL PAIN UPPER [None]
  - ANURIA [None]
  - ASPERGILLOSIS [None]
  - ATRIAL FIBRILLATION [None]
  - COUGH [None]
  - DYSPNOEA [None]
  - HAEMATURIA [None]
  - HAEMOPTYSIS [None]
  - LUNG INFILTRATION [None]
  - PAINFUL RESPIRATION [None]
  - PLEURAL EFFUSION [None]
  - PNEUMONIA [None]
